FAERS Safety Report 23895837 (Version 4)
Quarter: 2025Q3

REPORT INFORMATION
  Report Type: Report from Study
  Country: IN (occurrence: IN)
  Receive Date: 20240524
  Receipt Date: 20250827
  Transmission Date: 20251020
  Serious: Yes (Hospitalization)
  Sender: NOVARTIS
  Company Number: IN-002147023-NVSC2024IN109338

PATIENT
  Sex: Female

DRUGS (3)
  1. RIBOCICLIB [Suspect]
     Active Substance: RIBOCICLIB
     Indication: Breast cancer metastatic
     Dosage: 400 MG, QD
     Route: 048
     Dates: start: 20240110
  2. RIBOCICLIB [Suspect]
     Active Substance: RIBOCICLIB
     Indication: Breast cancer
     Dosage: 600 MG, QD
     Route: 048
     Dates: start: 20240118
  3. RIBOCICLIB [Suspect]
     Active Substance: RIBOCICLIB
     Indication: Breast cancer stage II
     Route: 048

REACTIONS (7)
  - Breast pain [Unknown]
  - Asthenia [Unknown]
  - Abdominal pain [Unknown]
  - Abdominal distension [Unknown]
  - Malaise [Unknown]
  - Fibrosis [Unknown]
  - Urinary tract infection [Unknown]
